FAERS Safety Report 5950301-0 (Version None)
Quarter: 2008Q4

REPORT INFORMATION
  Report Type: 
  Country: None (occurrence: None)
  Receive Date: 20081022
  Receipt Date: 20080708
  Transmission Date: 20090506
  Serious: No
  Sender: FDA-Public Use
  Company Number: ALL1-2008-01959

PATIENT
  Age: 62 Year
  Sex: Female
  Weight: 61.2 kg

DRUGS (4)
  1. VYVANSE [Suspect]
     Indication: ATTENTION DEFICIT/HYPERACTIVITY DISORDER
     Dosage: 70 MG, 1X/DAY:QD, ORAL
     Route: 048
     Dates: start: 20080707
  2. DESVENLAFAXINE [Suspect]
  3. PROZAC [Concomitant]
  4. SERAX [Concomitant]

REACTIONS (2)
  - AGITATION [None]
  - DISTURBANCE IN ATTENTION [None]
